FAERS Safety Report 4870445-4 (Version None)
Quarter: 2006Q1

REPORT INFORMATION
  Report Type: 
  Country: None (occurrence: None)
  Receive Date: 20060103
  Receipt Date: 20050621
  Transmission Date: 20060701
  Serious: Yes (Other)
  Sender: FDA-Public Use
  Company Number: US-BRISTOL-MYERS SQUIBB COMPANY-13012174

PATIENT
  Sex: Male

DRUGS (2)
  1. DESYREL [Suspect]
  2. ALCOHOL [Suspect]

REACTIONS (1)
  - SUICIDE ATTEMPT [None]
